FAERS Safety Report 5949883-4 (Version None)
Quarter: 2008Q4

REPORT INFORMATION
  Report Type: 
  Country: None (occurrence: None)
  Receive Date: 20081112
  Receipt Date: 20081107
  Transmission Date: 20090506
  Serious: Yes (Death)
  Sender: FDA-Public Use
  Company Number: JP-BRISTOL-MYERS SQUIBB COMPANY-14214779

PATIENT
  Age: 52 Year
  Sex: Female

DRUGS (3)
  1. TAXOL [Suspect]
     Indication: BREAST CANCER
     Dosage: 150 MG/M2X1/1WEEK FROM 13-JUL-06 TO 14-SEP-06 (4DAYS),
     Route: 041
     Dates: start: 20061005, end: 20061220
  2. DOXORUBICIN HCL [Suspect]
     Indication: BREAST CANCER
     Route: 042
     Dates: start: 20060713, end: 20060914
  3. HERCEPTIN [Concomitant]
     Route: 041

REACTIONS (7)
  - ACUTE MYELOID LEUKAEMIA [None]
  - ALOPECIA [None]
  - FATIGUE [None]
  - NAIL DISORDER [None]
  - OEDEMA [None]
  - PERIPHERAL SENSORY NEUROPATHY [None]
  - STOMATITIS [None]
